FAERS Safety Report 12066779 (Version 1)
Quarter: 2016Q1

REPORT INFORMATION
  Report Type: Spontaneous
  Country: US (occurrence: None)
  Receive Date: 20160210
  Receipt Date: 20160210
  Transmission Date: 20160526
  Serious: Yes (Hospitalization)
  Sender: FDA-Public Use
  Company Number: None

PATIENT
  Age: 48 Year
  Sex: Female
  Weight: 68.04 kg

DRUGS (3)
  1. SEROQUEL [Concomitant]
     Active Substance: QUETIAPINE FUMARATE
  2. MUTLI VITAMIN [Concomitant]
  3. QUETIAPINE [Suspect]
     Active Substance: QUETIAPINE
     Indication: BIPOLAR I DISORDER
     Dosage: 1/2 TABLET MORNG/ AFTN + 1 NIGT THREE TIMES DAILY TAKEN BY MOUTH
     Route: 048
     Dates: start: 20160203, end: 20160208

REACTIONS (8)
  - Vomiting [None]
  - Anxiety [None]
  - Insomnia [None]
  - Panic attack [None]
  - Suicidal ideation [None]
  - Thinking abnormal [None]
  - Nausea [None]
  - Tremor [None]

NARRATIVE: CASE EVENT DATE: 20160207
